FAERS Safety Report 8393134-0 (Version None)
Quarter: 2012Q2

REPORT INFORMATION
  Report Type: 
  Country: None (occurrence: None)
  Receive Date: 20120529
  Receipt Date: 20120425
  Transmission Date: 20120825
  Serious: No
  Sender: FDA-Public Use
  Company Number: US-ABBOTT-12P-163-0931282-00

PATIENT
  Sex: Male
  Weight: 141.65 kg

DRUGS (12)
  1. ANDROGEL [Suspect]
     Indication: BLOOD TESTOSTERONE DECREASED
     Dosage: 2 PUMPS PER DAY
     Dates: start: 20111201, end: 20120201
  2. BANANA OR ORANGE JUICE [Concomitant]
     Indication: PROPHYLAXIS
  3. ANTI-FUNGAL [Concomitant]
     Indication: NEUROPATHY PERIPHERAL
  4. 3 UNKNOWN MEDICATIONS [Concomitant]
     Indication: HYPERTENSION
  5. ANTIHISTAMINES [Concomitant]
     Indication: NASAL DECONGESTION THERAPY
  6. LACTOSE [Concomitant]
     Indication: LACTOSE INTOLERANCE
  7. SUDAFEDRIN [Concomitant]
     Indication: NASAL DECONGESTION THERAPY
  8. TEMAZEPAM [Concomitant]
     Indication: INSOMNIA
  9. ANTI-FUNGAL [Concomitant]
     Indication: LYME DISEASE
  10. MINOCYCLINE HCL [Concomitant]
     Indication: LYME DISEASE
  11. BANANA OR ORANGE JUICE [Concomitant]
     Indication: BLOOD POTASSIUM DECREASED
     Dosage: DAILY
  12. MINOCYCLINE HCL [Concomitant]
     Indication: NEUROPATHY PERIPHERAL

REACTIONS (2)
  - WEIGHT INCREASED [None]
  - BLOOD TESTOSTERONE DECREASED [None]
